FAERS Safety Report 7493183-0 (Version None)
Quarter: 2011Q2

REPORT INFORMATION
  Report Type: 
  Country: None (occurrence: None)
  Receive Date: 20110519
  Receipt Date: 20110519
  Transmission Date: 20111010
  Serious: Yes (Other)
  Sender: FDA-Public Use
  Company Number: None

PATIENT
  Age: 59 Year
  Sex: Female
  Weight: 75.3 kg

DRUGS (9)
  1. VELCADE [Concomitant]
  2. REVLIMID [Suspect]
     Indication: MULTIPLE MYELOMA
     Dosage: 25MG QHS PO
     Route: 048
     Dates: start: 20110318, end: 20110518
  3. DYNACIRC [Concomitant]
  4. AMILORIDE HYDROCHLORIDE [Concomitant]
  5. ZOMETA [Concomitant]
  6. ACYCLOVIR [Concomitant]
  7. SIMVASTAIN [Concomitant]
  8. ASPIRIN [Concomitant]
  9. BACTRIM DS [Concomitant]

REACTIONS (2)
  - NODULE [None]
  - DEEP VEIN THROMBOSIS [None]
